FAERS Safety Report 19465101 (Version 2)
Quarter: 2021Q3

REPORT INFORMATION
  Report Type: Spontaneous
  Country: JP (occurrence: JP)
  Receive Date: 20210627
  Receipt Date: 20210703
  Transmission Date: 20211014
  Serious: Yes (Other)
  Sender: FDA-Public Use
  Company Number: JP-TAKEDA-2021TJP045782

PATIENT
  Age: 89 Year
  Sex: Male

DRUGS (11)
  1. AMBROXOL HYDROCHLORIDE [Concomitant]
     Active Substance: AMBROXOL HYDROCHLORIDE
     Dosage: DOSAGE IS UNKNOWN
     Route: 050
  2. FEXOFENADINE HYDROCHLORIDE. [Concomitant]
     Active Substance: FEXOFENADINE HYDROCHLORIDE
     Dosage: DOSAGE IS UNKNOWN
     Route: 050
  3. BISOPROLOL FUMARATE. [Concomitant]
     Active Substance: BISOPROLOL FUMARATE
     Dosage: DOSAGE IS UNKNOWN
     Route: 050
  4. JUVELA N [Concomitant]
     Active Substance: TOCOPHERYL NICOTINATE, D-.ALPHA.
     Dosage: DOSAGE IS UNKNOWN
     Route: 050
  5. TOCOPHEROL [Concomitant]
     Active Substance: TOCOPHEROL
     Dosage: DOSAGE IS UNKNOWN
     Route: 050
  6. AZOSEMIDE [Concomitant]
     Active Substance: AZOSEMIDE
     Dosage: DOSAGE IS UNKNOWN
     Route: 050
  7. TAKELDA COMBINATION TABLETS [Suspect]
     Active Substance: ASPIRIN\LANSOPRAZOLE
     Indication: PRODUCT USED FOR UNKNOWN INDICATION
     Dosage: DOSAGE IS UNKNOWN1 DOSAGE FORM = 100MG ASPIRIN + 15MG LANSOPRAZOLE
     Route: 048
     Dates: start: 201605
  8. SELARA [Concomitant]
     Active Substance: EPLERENONE
     Dosage: DOSAGE IS UNKNOWN
     Route: 050
  9. LOXOPROFEN NA [Concomitant]
     Active Substance: LOXOPROFEN SODIUM
     Dosage: DOSAGE IS UNKNOWN
     Route: 050
  10. BISACODYL. [Concomitant]
     Active Substance: BISACODYL
     Dosage: DOSAGE IS UNKNOWN
     Route: 050
  11. SHOSEIRYUTO [Concomitant]
     Active Substance: EPHEDRA SINICA STEM\HERBALS
     Dosage: DOSAGE IS UNKNOWN
     Route: 050

REACTIONS (1)
  - Subacute cutaneous lupus erythematosus [Not Recovered/Not Resolved]

NARRATIVE: CASE EVENT DATE: 20210614
